FAERS Safety Report 17564330 (Version 1)
Quarter: 2020Q1

REPORT INFORMATION
  Report Type: Spontaneous
  Country: US (occurrence: US)
  Receive Date: 20200320
  Receipt Date: 20200320
  Transmission Date: 20200409
  Serious: Yes (Hospitalization, Other)
  Sender: FDA-Public Use
  Company Number: US-MICRO LABS LIMITED-ML2020-00827

PATIENT

DRUGS (2)
  1. APIXABAN [Suspect]
     Active Substance: APIXABAN
     Indication: ATRIAL FIBRILLATION
  2. APIXABAN [Suspect]
     Active Substance: APIXABAN
     Indication: CARDIAC VALVE DISEASE

REACTIONS (2)
  - Embolism [Unknown]
  - Cerebrovascular accident [Unknown]
